FAERS Safety Report 11117437 (Version 2)
Quarter: 2015Q3

REPORT INFORMATION
  Report Type: Spontaneous
  Country: US (occurrence: US)
  Receive Date: 20150516
  Receipt Date: 20150722
  Transmission Date: 20151125
  Serious: No
  Sender: FDA-Public Use
  Company Number: US-009507513-1505USA004070

PATIENT
  Sex: Female

DRUGS (1)
  1. JANUVIA [Suspect]
     Active Substance: SITAGLIPTIN PHOSPHATE
     Indication: DIABETES MELLITUS
     Dosage: UNKNOWN
     Route: 048

REACTIONS (5)
  - Glycosylated haemoglobin increased [Unknown]
  - Blood cholesterol abnormal [Unknown]
  - Malignant neoplasm progression [Unknown]
  - Blood glucose abnormal [Unknown]
  - Blood pressure abnormal [Unknown]
